FAERS Safety Report 9189848 (Version 2)
Quarter: 2013Q2

REPORT INFORMATION
  Report Type: Spontaneous
  Country: BR (occurrence: BR)
  Receive Date: 20130326
  Receipt Date: 20130530
  Transmission Date: 20140414
  Serious: Yes (Disabling, Other)
  Sender: FDA-Public Use
  Company Number: BR-PFIZER INC-2013094140

PATIENT
  Age: 54 Year
  Sex: Female

DRUGS (3)
  1. PRISTIQ [Suspect]
     Indication: DEPRESSION
     Dosage: 50MG DAILY
     Route: 048
     Dates: start: 20130221, end: 2013
  2. AMATO [Suspect]
     Dosage: 25MG AT NIGHT
     Dates: start: 201303, end: 2013
  3. AMATO [Suspect]
     Dosage: THE DOSE WAS DOUBLED
     Dates: start: 2013

REACTIONS (2)
  - Angle closure glaucoma [Recovered/Resolved]
  - Intraocular pressure increased [Recovered/Resolved]
